FAERS Safety Report 6876834-0 (Version None)
Quarter: 2010Q3

REPORT INFORMATION
  Report Type: 
  Country: None (occurrence: None)
  Receive Date: 20100727
  Receipt Date: 20100716
  Transmission Date: 20110219
  Serious: Yes (Congenital Anomaly)
  Sender: FDA-Public Use
  Company Number: US-ROCHE-715982

PATIENT

DRUGS (2)
  1. ZALCITABINE [Suspect]
     Indication: PROPHYLAXIS AGAINST HIV INFECTION
  2. LOPINAVIR/RITONAVIR [Suspect]
     Indication: PROPHYLAXIS AGAINST HIV INFECTION

REACTIONS (1)
  - DIAPHRAGMATIC HERNIA [None]
